FAERS Safety Report 9353595 (Version 2)
Quarter: 2013Q4

REPORT INFORMATION
  Report Type: Spontaneous
  Country: US (occurrence: US)
  Receive Date: 20130618
  Receipt Date: 20131119
  Transmission Date: 20140711
  Serious: Yes (Hospitalization)
  Sender: FDA-Public Use
  Company Number: US-BAYER-2013-072696

PATIENT
  Age: 33 Year
  Sex: Female
  Weight: 65.76 kg

DRUGS (3)
  1. MIRENA [Suspect]
     Indication: CONTRACEPTION
     Dosage: 20 MCG/24HR, CONT
     Route: 015
     Dates: start: 20061027, end: 20070223
  2. FLUOXETINE [Concomitant]
     Indication: ANXIETY
     Dosage: UNK
     Dates: start: 2006
  3. FLUOXETINE [Concomitant]
     Indication: DEPRESSION

REACTIONS (7)
  - Ruptured ectopic pregnancy [None]
  - Ectopic pregnancy with contraceptive device [None]
  - Post procedural haemorrhage [None]
  - Drug ineffective [None]
  - Pain [None]
  - Depression [None]
  - Anxiety [None]
